FAERS Safety Report 19184885 (Version 3)
Quarter: 2021Q3

REPORT INFORMATION
  Report Type: Report from Study
  Country: US (occurrence: US)
  Receive Date: 20210427
  Receipt Date: 20210701
  Transmission Date: 20211014
  Serious: Yes (Other)
  Sender: FDA-Public Use
  Company Number: US-BAYER-2021-109639

PATIENT
  Age: 64 Year
  Sex: Female

DRUGS (5)
  1. STIVARGA [Suspect]
     Active Substance: REGORAFENIB
     Indication: COLORECTAL CANCER
     Dosage: DAILY DOSE 80 MG FOR 1 WEEK
     Route: 048
     Dates: start: 20210314, end: 20210320
  2. STIVARGA [Suspect]
     Active Substance: REGORAFENIB
     Indication: COLORECTAL CANCER
     Dosage: DAILY DOSE 80 MG FOR 1 WEEK
     Route: 048
     Dates: start: 20210413
  3. STIVARGA [Suspect]
     Active Substance: REGORAFENIB
     Indication: COLORECTAL CANCER
     Dosage: DAILY DOSE 120 MG FOR 21 DAYS AND OFF 7 DAYS
     Route: 048
     Dates: start: 20210622
  4. STIVARGA [Suspect]
     Active Substance: REGORAFENIB
     Indication: COLORECTAL CANCER
     Dosage: 120 MG DAILY FOR 1 WEEK
     Route: 048
     Dates: start: 20210321, end: 2021
  5. STIVARGA [Suspect]
     Active Substance: REGORAFENIB
     Indication: COLORECTAL CANCER
     Dosage: 120 MG DAILY FOR 2 WEEKS
     Route: 048
     Dates: start: 20210520, end: 202106

REACTIONS (20)
  - Product use issue [Not Recovered/Not Resolved]
  - Blood pressure increased [Recovering/Resolving]
  - Dysphagia [Unknown]
  - Diarrhoea [Not Recovered/Not Resolved]
  - Drug intolerance [Unknown]
  - Dysphonia [Not Recovered/Not Resolved]
  - Gait disturbance [Recovering/Resolving]
  - Faeces soft [Not Recovered/Not Resolved]
  - Off label use [Not Recovered/Not Resolved]
  - Dysphonia [Not Recovered/Not Resolved]
  - Oropharyngeal pain [Unknown]
  - Blood pressure diastolic increased [Unknown]
  - Pain [Recovering/Resolving]
  - Decreased activity [Not Recovered/Not Resolved]
  - Paraesthesia [Not Recovered/Not Resolved]
  - Palmar-plantar erythrodysaesthesia syndrome [Unknown]
  - Blister [Not Recovered/Not Resolved]
  - Blister [Recovering/Resolving]
  - Fatigue [Recovering/Resolving]
  - Pain in extremity [Not Recovered/Not Resolved]

NARRATIVE: CASE EVENT DATE: 202103
